FAERS Safety Report 15188629 (Version 2)
Quarter: 2018Q3

REPORT INFORMATION
  Report Type: Spontaneous
  Country: US (occurrence: US)
  Receive Date: 20180724
  Receipt Date: 20180727
  Transmission Date: 20181010
  Serious: Yes (Other)
  Sender: FDA-Public Use
  Company Number: US-PFIZER INC-2018295374

PATIENT
  Sex: Male

DRUGS (1)
  1. DOPAMINE HCL [Suspect]
     Active Substance: DOPAMINE HYDROCHLORIDE
     Dosage: UNK (RATE OF 5 MCG PER KG PER MIN)

REACTIONS (2)
  - Blood pressure increased [Unknown]
  - Heart rate increased [Unknown]
